FAERS Safety Report 6894406-9 (Version None)
Quarter: 2010Q3

REPORT INFORMATION
  Report Type: 
  Country: None (occurrence: None)
  Receive Date: 20100802
  Receipt Date: 20100728
  Transmission Date: 20110219
  Serious: Yes (Hospitalization)
  Sender: FDA-Public Use
  Company Number: US-ELI_LILLY_AND_COMPANY-US201004001572

PATIENT
  Sex: Male
  Weight: 51.48 kg

DRUGS (17)
  1. PEMETREXED [Suspect]
     Indication: NON-SMALL CELL LUNG CANCER
     Dosage: 500 MG/M2, OTHER
     Route: 042
     Dates: start: 20100218, end: 20100311
  2. CARBOPLATIN [Suspect]
     Indication: NON-SMALL CELL LUNG CANCER
     Dosage: 6 D/F, OTHER
     Route: 042
     Dates: start: 20100218, end: 20100311
  3. BEVACIZUMAB [Suspect]
     Indication: NON-SMALL CELL LUNG CANCER
     Dosage: 15 MG/KG, OTHER
     Route: 042
     Dates: start: 20100218, end: 20100311
  4. ASPIRIN [Concomitant]
     Indication: PROPHYLAXIS
     Dates: start: 20100129
  5. CALCIUM WITH VITAMIN D /00944201/ [Concomitant]
     Indication: PROPHYLAXIS
     Dates: start: 20090101
  6. CATAPRES                                /UNK/ [Concomitant]
     Indication: HYPERTENSION
     Dates: start: 20090101
  7. DECADRON [Concomitant]
     Dates: start: 20100218
  8. LACTULOSE [Concomitant]
     Indication: CONSTIPATION
     Dates: start: 20100107
  9. MEGACE [Concomitant]
     Indication: WEIGHT DECREASED
     Dates: start: 20100213
  10. MULTI-VITAMIN [Concomitant]
     Indication: PROPHYLAXIS
     Dates: start: 20100218
  11. ZOFRAN [Concomitant]
     Indication: ANTIEMETIC SUPPORTIVE CARE
     Dates: start: 20100218
  12. ROXICODONE [Concomitant]
     Indication: PAIN
     Dates: start: 20091209
  13. COMPAZINE [Concomitant]
     Indication: ANTIEMETIC SUPPORTIVE CARE
     Dates: start: 20100107
  14. LIDOCAINE [Concomitant]
     Indication: PAIN
     Dates: start: 20091216
  15. PERCOCET [Concomitant]
     Indication: PAIN
     Dates: start: 20100107
  16. VITAMIN B-12 [Concomitant]
     Indication: SUPPLEMENTATION THERAPY
     Dates: start: 20100107
  17. FOLIC ACID [Concomitant]
     Indication: SUPPLEMENTATION THERAPY
     Dates: start: 20091211

REACTIONS (4)
  - FAILURE TO THRIVE [None]
  - HYPERTENSION [None]
  - HYPONATRAEMIA [None]
  - PNEUMONIA [None]
